FAERS Safety Report 9648940 (Version 11)
Quarter: 2015Q1

REPORT INFORMATION
  Report Type: Report from Study
  Country: BR (occurrence: BR)
  Receive Date: 20131028
  Receipt Date: 20150110
  Transmission Date: 20150721
  Serious: Yes (Death, Life-Threatening, Hospitalization, Other)
  Sender: FDA-Public Use
  Company Number: BR-ASTRAZENECA-2013SE75746

PATIENT
  Age: 25218 Day
  Sex: Male

DRUGS (7)
  1. COVERDILOL [Concomitant]
     Indication: CORONARY ARTERY DISEASE
     Route: 048
  2. ASA [Concomitant]
     Active Substance: ASPIRIN
     Route: 048
     Dates: start: 20111013
  3. AZD6140 [Suspect]
     Active Substance: TICAGRELOR
     Indication: CORONARY ARTERY DISEASE
     Route: 048
     Dates: start: 20120207, end: 20130810
  4. AZD6140 [Suspect]
     Active Substance: TICAGRELOR
     Indication: CORONARY ARTERY DISEASE
     Route: 048
     Dates: start: 20111013, end: 20120105
  5. ENALAPRIL [Concomitant]
     Active Substance: ENALAPRIL
     Indication: HYPERTENSION
     Route: 048
  6. SINVASTATINA [Concomitant]
     Indication: CORONARY ARTERY DISEASE
     Route: 048
  7. CLORANA [Concomitant]
     Active Substance: HYDROCHLOROTHIAZIDE
     Indication: HYPERTENSION
     Route: 048

REACTIONS (4)
  - Septic shock [Recovered/Resolved]
  - Thrombocytopenia [Not Recovered/Not Resolved]
  - Melaena [Not Recovered/Not Resolved]
  - Acute abdomen [Fatal]

NARRATIVE: CASE EVENT DATE: 20130810
